FAERS Safety Report 9715199 (Version 3)
Quarter: 2014Q1

REPORT INFORMATION
  Report Type: Spontaneous
  Country: US (occurrence: US)
  Receive Date: 20131126
  Receipt Date: 20140110
  Transmission Date: 20141002
  Serious: No
  Sender: FDA-Public Use
  Company Number: US-TEVA-447430USA

PATIENT
  Age: 24 Year
  Sex: Female

DRUGS (3)
  1. PLAN B ONE-STEP [Suspect]
     Indication: POST COITAL CONTRACEPTION
     Dosage: 1.5 MILLIGRAM DAILY;
     Route: 048
     Dates: start: 20131025, end: 20131025
  2. PLAN B ONE-STEP [Suspect]
     Dosage: 1.5 MILLIGRAM DAILY;
     Route: 048
     Dates: start: 20131030, end: 20131030
  3. VICODIN [Concomitant]
     Indication: TUMOUR PAIN
     Dates: start: 20131018, end: 20131023

REACTIONS (3)
  - Menstruation delayed [Recovered/Resolved]
  - Fatigue [Recovered/Resolved]
  - Breast pain [Recovered/Resolved]
